FAERS Safety Report 10694202 (Version 2)
Quarter: 2015Q1

REPORT INFORMATION
  Report Type: Spontaneous
  Country: US (occurrence: US)
  Receive Date: 20150106
  Receipt Date: 20150121
  Transmission Date: 20150721
  Serious: Yes (Hospitalization, Other)
  Sender: FDA-Public Use
  Company Number: US-AMGEN-USASP2015000030

PATIENT
  Age: 73 Year
  Sex: Male
  Weight: 51.7 kg

DRUGS (3)
  1. HYDROXYCHLOROQUINE [Concomitant]
     Active Substance: HYDROXYCHLOROQUINE
     Indication: RHEUMATOID ARTHRITIS
     Dosage: UNK
  2. ENBREL [Suspect]
     Active Substance: ETANERCEPT
     Indication: RHEUMATOID ARTHRITIS
     Dosage: UNK
     Route: 065
  3. PROLIA [Suspect]
     Active Substance: DENOSUMAB
     Indication: SENILE OSTEOPOROSIS
     Dosage: 60 MG, UNK (MONTHS)
     Route: 065
     Dates: start: 20141222

REACTIONS (10)
  - Lung infection pseudomonal [Unknown]
  - Foot deformity [Unknown]
  - Hand deformity [Unknown]
  - Pain [Unknown]
  - White blood cell count abnormal [Unknown]
  - Localised infection [Unknown]
  - Dyspnoea [Recovered/Resolved]
  - Chest discomfort [Unknown]
  - Infection [Unknown]
  - Pain in extremity [Unknown]

NARRATIVE: CASE EVENT DATE: 201412
